FAERS Safety Report 21375003 (Version 2)
Quarter: 2023Q2

REPORT INFORMATION
  Report Type: Spontaneous
  Country: CA (occurrence: CA)
  Receive Date: 20220926
  Receipt Date: 20230508
  Transmission Date: 20230722
  Serious: Yes (Death, Hospitalization, Other)
  Sender: FDA-Public Use
  Company Number: CA-SAMSUNG BIOEPIS-SB-2022-23949

PATIENT
  Age: 43 Year
  Sex: Male
  Weight: 95 kg

DRUGS (7)
  1. INFLIXIMAB [Suspect]
     Active Substance: INFLIXIMAB
     Indication: Colitis ulcerative
     Route: 041
  2. INFLIXIMAB [Suspect]
     Active Substance: INFLIXIMAB
     Route: 041
  3. INFLIXIMAB [Suspect]
     Active Substance: INFLIXIMAB
     Route: 042
  4. BUTYLSCOPOLAMINE BROMIDE [Concomitant]
     Active Substance: BUTYLSCOPOLAMINE BROMIDE
     Indication: Product used for unknown indication
     Dosage: UNKNOWN
     Route: 065
  5. HYDROMORPHONE [Concomitant]
     Active Substance: HYDROMORPHONE
     Indication: Product used for unknown indication
     Route: 065
  6. VENTOLIN [Concomitant]
     Active Substance: ALBUTEROL SULFATE
     Indication: Product used for unknown indication
     Dosage: UNKNOWN
     Route: 065
  7. HERBALS\PLANTAGO OVATA LEAF [Concomitant]
     Active Substance: HERBALS\PLANTAGO OVATA LEAF
     Indication: Product used for unknown indication
     Dosage: UNKNOWN
     Route: 065

REACTIONS (16)
  - Death [Fatal]
  - Condition aggravated [Fatal]
  - Weight increased [Fatal]
  - Cardiac disorder [Fatal]
  - Catheter site pain [Fatal]
  - Faeces hard [Fatal]
  - Frequent bowel movements [Fatal]
  - Illness [Fatal]
  - Malaise [Fatal]
  - Pyrexia [Fatal]
  - Rectal haemorrhage [Fatal]
  - Stress [Fatal]
  - Withdrawal syndrome [Fatal]
  - Intentional product use issue [Fatal]
  - Inappropriate schedule of product administration [Fatal]
  - Off label use [Fatal]
